FAERS Safety Report 24309514 (Version 1)
Quarter: 2024Q3

REPORT INFORMATION
  Report Type: Spontaneous
  Country: US (occurrence: US)
  Receive Date: 20240912
  Receipt Date: 20240912
  Transmission Date: 20241017
  Serious: Yes (Hospitalization)
  Sender: STRIDES
  Company Number: US-STRIDES ARCOLAB LIMITED-2024SP011542

PATIENT
  Age: 35 Year
  Sex: Male

DRUGS (1)
  1. SEVELAMER CARBONATE [Suspect]
     Active Substance: SEVELAMER CARBONATE
     Indication: End stage renal disease
     Dosage: 2400 MILLIGRAM, TID
     Route: 065

REACTIONS (4)
  - Ischaemic enteritis [Recovered/Resolved]
  - Haematochezia [Recovered/Resolved]
  - Mucosal necrosis [Recovered/Resolved]
  - Off label use [Unknown]
